FAERS Safety Report 5936465-3 (Version None)
Quarter: 2008Q4

REPORT INFORMATION
  Report Type: 
  Country: None (occurrence: None)
  Receive Date: 20081030
  Receipt Date: 20081028
  Transmission Date: 20090506
  Serious: Yes (Other)
  Sender: FDA-Public Use
  Company Number: US-AMGEN-QUU314012

PATIENT
  Sex: Male

DRUGS (1)
  1. ENBREL [Suspect]
     Indication: PSORIASIS
     Route: 058

REACTIONS (8)
  - ABDOMINAL PAIN UPPER [None]
  - CHOLANGITIS SCLEROSING [None]
  - CYST [None]
  - ENTERITIS INFECTIOUS [None]
  - HEPATIC CYST [None]
  - HEPATIC FAILURE [None]
  - INFECTION SUSCEPTIBILITY INCREASED [None]
  - PSORIASIS [None]
